FAERS Safety Report 21838405 (Version 1)
Quarter: 2023Q1

REPORT INFORMATION
  Report Type: Spontaneous
  Country: CO (occurrence: CO)
  Receive Date: 20230109
  Receipt Date: 20230109
  Transmission Date: 20230417
  Serious: Yes (Other)
  Sender: FDA-Public Use
  Company Number: CO-VERTEX PHARMACEUTICALS-2023-000103

PATIENT
  Age: 21 Year
  Sex: Female
  Weight: 50 kg

DRUGS (6)
  1. TRIKAFTA [Suspect]
     Active Substance: ELEXACAFTOR\IVACAFTOR\TEZACAFTOR
     Indication: Cystic fibrosis
     Dosage: UNK, BID
     Route: 048
     Dates: start: 20220308
  2. TOBRAMYCIN [Suspect]
     Active Substance: TOBRAMYCIN
     Indication: Pseudomonas infection
     Dosage: 112 MILLIGRAM, BID
     Route: 055
     Dates: start: 20221222, end: 20221229
  3. DOMPERIDONE [Concomitant]
     Active Substance: DOMPERIDONE
     Indication: Cystic fibrosis
     Dosage: 10 MILLIGRAM, QD
     Route: 048
  4. ALBUTEROL [Concomitant]
     Active Substance: ALBUTEROL
     Indication: Cystic fibrosis
     Dosage: 100 MILLIGRAM, QD
     Route: 055
  5. DORNASE ALFA [Concomitant]
     Active Substance: DORNASE ALFA
     Indication: Cystic fibrosis
     Dosage: 1 AMP
     Route: 055
  6. SACCHAROMYCES CEREVISIAE [Concomitant]
     Active Substance: SACCHAROMYCES CEREVISIAE
     Indication: Cystic fibrosis
     Dosage: 250 MILLIGRAM, QD
     Route: 048

REACTIONS (5)
  - Pseudomonas infection [Recovering/Resolving]
  - Oxygen saturation decreased [Recovered/Resolved]
  - Back pain [Recovering/Resolving]
  - Chest discomfort [Recovered/Resolved]
  - Cough [Recovered/Resolved]

NARRATIVE: CASE EVENT DATE: 20221209
